FAERS Safety Report 7299310-2 (Version None)
Quarter: 2011Q1

REPORT INFORMATION
  Report Type: 
  Country: None (occurrence: None)
  Receive Date: 20110217
  Receipt Date: 20110214
  Transmission Date: 20110831
  Serious: Yes (Congenital Anomaly)
  Sender: FDA-Public Use
  Company Number: A0687216A

PATIENT
  Sex: Female
  Weight: 3.6 kg

DRUGS (6)
  1. REGLAN [Concomitant]
     Route: 064
  2. IRON SUPPLEMENT [Concomitant]
     Route: 064
  3. PAXIL [Suspect]
     Dosage: 20MG PER DAY
     Route: 064
     Dates: start: 20000901, end: 20010601
  4. RANITIDINE [Concomitant]
     Route: 064
  5. PRENATAL VITAMINS [Concomitant]
     Route: 064
  6. ERYTHROMYCIN [Concomitant]
     Route: 064

REACTIONS (2)
  - DRUG EXPOSURE DURING PREGNANCY [None]
  - ATRIAL SEPTAL DEFECT [None]
